FAERS Safety Report 14759404 (Version 1)
Quarter: 2018Q2

REPORT INFORMATION
  Report Type: Report from Study
  Country: JP (occurrence: JP)
  Receive Date: 20180413
  Receipt Date: 20180413
  Transmission Date: 20180711
  Serious: Yes (Death, Life-Threatening)
  Sender: FDA-Public Use
  Company Number: JP-CELGENEUS-JPN-20180403386

PATIENT
  Age: 75 Year
  Sex: Male

DRUGS (20)
  1. CLOTIAZEPAM [Concomitant]
     Active Substance: CLOTIAZEPAM
     Indication: TINNITUS
     Dosage: 10 MILLIGRAM
     Route: 048
     Dates: start: 2008
  2. SPIRIVA [Concomitant]
     Active Substance: TIOTROPIUM BROMIDE MONOHYDRATE
     Indication: CHRONIC OBSTRUCTIVE PULMONARY DISEASE
     Route: 055
     Dates: start: 2003
  3. SYMBICORT [Concomitant]
     Active Substance: BUDESONIDE\FORMOTEROL FUMARATE DIHYDRATE
     Indication: CHRONIC OBSTRUCTIVE PULMONARY DISEASE
     Dosage: 1 PUFF BID
     Route: 055
     Dates: start: 2003
  4. PROPETO [Concomitant]
     Indication: RASH
     Route: 061
     Dates: start: 20180307
  5. ABRAXANE [Suspect]
     Active Substance: PACLITAXEL
     Indication: NON-SMALL CELL LUNG CANCER
     Dosage: 100 MILLIGRAM/SQ. METER
     Route: 042
     Dates: start: 20180228, end: 20180228
  6. ABRAXANE [Suspect]
     Active Substance: PACLITAXEL
     Indication: NON-SMALL CELL LUNG CANCER
     Dosage: 100 MILLIGRAM/SQ. METER
     Route: 042
     Dates: start: 20180404, end: 20180404
  7. CARBOPLATIN. [Concomitant]
     Active Substance: CARBOPLATIN
     Indication: NON-SMALL CELL LUNG CANCER
     Dosage: 5 AUC
     Route: 042
     Dates: start: 20180221, end: 20180221
  8. SULPIRIDE [Concomitant]
     Active Substance: SULPIRIDE
     Indication: TINNITUS
     Dosage: 100 MILLIGRAM
     Route: 048
     Dates: start: 2008
  9. RINDERON VG [Concomitant]
     Active Substance: BETAMETHASONE VALERATE\GENTAMICIN SULFATE
     Indication: RASH
     Dosage: BID
     Route: 061
     Dates: start: 20180307
  10. TAPROS [Concomitant]
     Indication: GLAUCOMA
     Dosage: 4 DROPS
     Route: 047
     Dates: start: 20180326
  11. ABRAXANE [Suspect]
     Active Substance: PACLITAXEL
     Indication: NON-SMALL CELL LUNG CANCER
     Dosage: 100 MILLIGRAM/SQ. METER
     Route: 042
     Dates: start: 20180328, end: 20180328
  12. AMBROXOL HYDROCHLORIDE [Concomitant]
     Active Substance: AMBROXOL HYDROCHLORIDE
     Indication: PRODUCTIVE COUGH
     Route: 048
     Dates: start: 20180207
  13. ZOPICLONE [Concomitant]
     Active Substance: ZOPICLONE
     Indication: INSOMNIA
     Dosage: 7.5 MILLIGRAM
     Route: 048
     Dates: start: 20180221
  14. MAGNESIUM OXIDE. [Concomitant]
     Active Substance: MAGNESIUM OXIDE
     Indication: CONSTIPATION
     Dosage: 1980 MILLIGRAM
     Route: 048
     Dates: start: 20180301
  15. SENNOSIDE [Concomitant]
     Active Substance: SENNOSIDES
     Indication: CONSTIPATION
     Route: 048
     Dates: start: 20180222
  16. PREDONINE [Concomitant]
     Active Substance: PREDNISOLONE
     Indication: RASH
     Dosage: 10 MILLIGRAM
     Route: 048
     Dates: start: 20180307
  17. ABRAXANE [Suspect]
     Active Substance: PACLITAXEL
     Indication: NON-SMALL CELL LUNG CANCER
     Dosage: 100 MILLIGRAM/SQ. METER
     Route: 042
     Dates: start: 20180221
  18. CARBOPLATIN. [Concomitant]
     Active Substance: CARBOPLATIN
     Indication: NON-SMALL CELL LUNG CANCER
     Dosage: 5 AUC
     Route: 042
     Dates: start: 20180328, end: 20180328
  19. LANSOPRAZOLE. [Concomitant]
     Active Substance: LANSOPRAZOLE
     Indication: GASTRITIS PROPHYLAXIS
     Dosage: 15 MILLIGRAM
     Route: 048
     Dates: start: 2008
  20. ASTOMIN [Concomitant]
     Active Substance: DIMEMORFAN
     Indication: ANTITUSSIVE THERAPY
     Dosage: 30 MILLIGRAM
     Route: 048
     Dates: start: 20180207

REACTIONS (3)
  - Circulatory collapse [Fatal]
  - Respiratory failure [Fatal]
  - Febrile neutropenia [Fatal]

NARRATIVE: CASE EVENT DATE: 20180408
